FAERS Safety Report 4356502-X (Version None)
Quarter: 2004Q2

REPORT INFORMATION
  Report Type: 
  Country: None (occurrence: None)
  Receive Date: 20040507
  Receipt Date: 20040420
  Transmission Date: 20050107
  Serious: No
  Sender: FDA-Public Use
  Company Number: PHBS2004NL05381

PATIENT
  Age: 40 Year
  Sex: Female

DRUGS (5)
  1. LIORESAL [Suspect]
  2. NIFEDIPINE [Concomitant]
  3. AMILORIDE W/HYDROCHLOROTHIAZIDE (AMILORIDE) [Concomitant]
  4. TRAMADOL HCL [Concomitant]
  5. CARBAMAZEPINE [Concomitant]

REACTIONS (2)
  - DYSGEUSIA [None]
  - PAROSMIA [None]
